FAERS Safety Report 12746328 (Version 1)
Quarter: 2016Q3

REPORT INFORMATION
  Report Type: Spontaneous
  Country: US (occurrence: US)
  Receive Date: 20160914
  Receipt Date: 20160914
  Transmission Date: 20161109
  Serious: No
  Sender: FDA-Public Use
  Company Number: None

PATIENT

DRUGS (1)
  1. HANDISEPT [Suspect]
     Active Substance: TRICLOSAN

REACTIONS (2)
  - Product label issue [None]
  - Product lot number issue [None]

NARRATIVE: CASE EVENT DATE: 20160208
